FAERS Safety Report 6026317-5 (Version None)
Quarter: 2008Q4

REPORT INFORMATION
  Report Type: 
  Country: None (occurrence: None)
  Receive Date: 20081230
  Receipt Date: 20081216
  Transmission Date: 20090506
  Serious: Yes (Other)
  Sender: FDA-Public Use
  Company Number: TRP_06016_2008

PATIENT
  Age: 37 Year
  Sex: Female

DRUGS (1)
  1. AMPHOTERICIN B [Suspect]
     Indication: LOWER RESPIRATORY TRACT INFECTION FUNGAL
     Dosage: 3 MG PER DAY

REACTIONS (1)
  - LEUKOCYTOCLASTIC VASCULITIS [None]
